FAERS Safety Report 5303586-8 (Version None)
Quarter: 2007Q2

REPORT INFORMATION
  Report Type: 
  Country: None (occurrence: None)
  Receive Date: 20070420
  Receipt Date: 20070410
  Transmission Date: 20071010
  Serious: Yes (Death, Other)
  Sender: FDA-Public Use
  Company Number: GB-PFIZER INC-2007028900

PATIENT
  Age: 79 Year
  Sex: Male

DRUGS (14)
  1. DALACIN [Suspect]
     Indication: PYOTHORAX
     Route: 042
     Dates: start: 20070302, end: 20070305
  2. DALACIN [Suspect]
     Indication: PYREXIA
  3. TAZOCIN [Suspect]
     Indication: PYOTHORAX
     Route: 042
     Dates: start: 20070302, end: 20070305
  4. TAZOCIN [Suspect]
     Indication: PYREXIA
  5. CODEINE PHOSPHATE [Concomitant]
     Dosage: DAILY DOSE:3GRAM
     Dates: start: 20070216, end: 20070304
  6. FAMOTIDINE [Concomitant]
     Dosage: DAILY DOSE:20MG
     Dates: start: 20070217, end: 20070304
  7. FERROUS SULFATE TAB [Concomitant]
     Dosage: DAILY DOSE:305MG
     Dates: start: 20070217, end: 20070304
  8. LACTOBACILLUS ACIDOPHILUS [Concomitant]
     Dosage: DAILY DOSE:3GRAM
     Dates: start: 20070302, end: 20070304
  9. MOBIC [Concomitant]
     Dosage: DAILY DOSE:10MG
     Dates: start: 20060426, end: 20070304
  10. NITRAZEPAM [Concomitant]
     Dosage: DAILY DOSE:5MG
     Dates: start: 20070215, end: 20070304
  11. REBAMIPIDE [Concomitant]
     Dosage: DAILY DOSE:100MG
     Dates: start: 20070221, end: 20070304
  12. MECOBALAMIN [Concomitant]
     Dosage: DAILY DOSE:1500MCG
     Dates: start: 20070217, end: 20070304
  13. DEPAS [Concomitant]
     Dosage: DAILY DOSE:.5MG
  14. LOXONIN [Concomitant]
     Dosage: DAILY DOSE:60MG
     Dates: start: 20070221, end: 20070304

REACTIONS (2)
  - ACUTE RESPIRATORY DISTRESS SYNDROME [None]
  - INTERSTITIAL LUNG DISEASE [None]
